FAERS Safety Report 4805488-X (Version None)
Quarter: 2005Q4

REPORT INFORMATION
  Report Type: 
  Country: None (occurrence: None)
  Receive Date: 20051018
  Receipt Date: 20051006
  Transmission Date: 20060501
  Serious: Yes (Hospitalization)
  Sender: FDA-Public Use
  Company Number: 2005BH000926

PATIENT
  Age: 73 Year
  Sex: Male
  Weight: 62.2 kg

DRUGS (17)
  1. EXTRANEAL [Suspect]
     Dosage: SEE IMAGE
     Route: 033
     Dates: start: 20040329, end: 20041208
  2. EXTRANEAL [Suspect]
     Dosage: SEE IMAGE
     Route: 033
     Dates: start: 20041210, end: 20041210
  3. EXTRANEAL [Suspect]
     Dosage: SEE IMAGE
     Route: 033
     Dates: start: 20041211
  4. DIANEAL [Concomitant]
  5. GUANABENZ ACETATE [Concomitant]
  6. MICARDIS [Concomitant]
  7. ADALAT [Concomitant]
  8. AMLODIPINE BESYLATE [Concomitant]
  9. ATORVASTTIN CALCIUM [Concomitant]
  10. AMARYL [Concomitant]
  11. KINEDAK [Concomitant]
  12. POLARAMINE [Concomitant]
  13. ALESION [Concomitant]
  14. ALFAROL [Concomitant]
  15. EPOETIN BETA [Concomitant]
  16. ATELEC [Concomitant]
  17. ALLOPURINOL [Concomitant]

REACTIONS (3)
  - INGUINAL HERNIA [None]
  - POST PROCEDURAL HAEMORRHAGE [None]
  - PROCEDURAL PAIN [None]
